FAERS Safety Report 23285063 (Version 3)
Quarter: 2024Q1

REPORT INFORMATION
  Report Type: Spontaneous
  Country: AT (occurrence: AT)
  Receive Date: 20231211
  Receipt Date: 20240215
  Transmission Date: 20240410
  Serious: Yes (Other)
  Sender: FDA-Public Use
  Company Number: AT-JNJFOC-20231214266

PATIENT
  Age: 60 Year
  Sex: Female
  Weight: 35.412 kg

DRUGS (15)
  1. STELARA [Suspect]
     Active Substance: USTEKINUMAB
     Indication: Psoriasis
     Route: 058
     Dates: end: 201801
  2. STELARA [Suspect]
     Active Substance: USTEKINUMAB
     Route: 058
     Dates: start: 20220215
  3. STELARA [Suspect]
     Active Substance: USTEKINUMAB
     Route: 058
     Dates: start: 20220614, end: 202308
  4. TREMFYA [Suspect]
     Active Substance: GUSELKUMAB
     Indication: Psoriasis
     Route: 065
     Dates: start: 20230801
  5. TREMFYA [Suspect]
     Active Substance: GUSELKUMAB
     Indication: Psoriasis
  6. TREMFYA [Suspect]
     Active Substance: GUSELKUMAB
  7. CHOLESTYRAMINE [Concomitant]
     Active Substance: CHOLESTYRAMINE
     Indication: Crohn^s disease
  8. SEMGLEE [INSULIN GLARGINE] [Concomitant]
     Indication: Diabetes mellitus
     Dosage: 100 IU/ML PRE-FILLED PEN 3 [ML]
  9. PANTOPRAZOLE SODIUM [Concomitant]
     Active Substance: PANTOPRAZOLE SODIUM
     Route: 065
  10. DEXIBUPROFEN [Concomitant]
     Active Substance: DEXIBUPROFEN
     Indication: Pain
  11. EMEND [Concomitant]
     Active Substance: APREPITANT
     Route: 048
  12. DEXAMETHASONE [Concomitant]
     Active Substance: DEXAMETHASONE
     Route: 065
  13. PANCRELIPASE [Concomitant]
     Active Substance: PANCRELIPASE
     Route: 065
  14. NOVALGIN (METAMIZOLE SODIUM) [Concomitant]
     Active Substance: METAMIZOLE SODIUM
  15. ZOFRAN [Concomitant]
     Active Substance: ONDANSETRON HYDROCHLORIDE

REACTIONS (3)
  - Pancreatic carcinoma [Not Recovered/Not Resolved]
  - Metastases to stomach [Unknown]
  - Nephrectomy [Unknown]

NARRATIVE: CASE EVENT DATE: 20231106
